FAERS Safety Report 6579425-4 (Version None)
Quarter: 2010Q1

REPORT INFORMATION
  Report Type: 
  Country: None (occurrence: None)
  Receive Date: 20100212
  Receipt Date: 20100203
  Transmission Date: 20100710
  Serious: Yes (Hospitalization)
  Sender: FDA-Public Use
  Company Number: DE-BRISTOL-MYERS SQUIBB COMPANY-14795058

PATIENT
  Age: 70 Year
  Sex: Female
  Weight: 66 kg

DRUGS (3)
  1. CETUXIMAB [Suspect]
     Indication: NON-SMALL CELL LUNG CANCER
     Dosage: CETUXIMAB 5 MG/ML,MOST RECENT INF ON 11SEP09 INTERRUPTED ON 18SEP09
     Route: 042
     Dates: start: 20090702
  2. CARBOPLATIN [Suspect]
     Indication: NON-SMALL CELL LUNG CANCER
     Dosage: 1DF-4AUC(DAY 1 OF 21 DAYS CYCLE).MOST RECENT INF ON 04SEP09
     Route: 042
     Dates: start: 20090702
  3. GEMCITABINE [Suspect]
     Indication: NON-SMALL CELL LUNG CANCER
     Dosage: 1,8,21DAYS CYCLE,MOST RECENT INF ON 11SEP09
     Route: 042
     Dates: start: 20090702

REACTIONS (1)
  - THROMBOCYTOPENIA [None]
